FAERS Safety Report 5575241-0 (Version None)
Quarter: 2007Q4

REPORT INFORMATION
  Report Type: 
  Country: None (occurrence: None)
  Receive Date: 20071221
  Receipt Date: 20071211
  Transmission Date: 20080405
  Serious: Yes (Other)
  Sender: FDA-Public Use
  Company Number: US-JNJFOC-20071203731

PATIENT
  Age: 62 Year
  Sex: Male
  Weight: 91.6266 kg

DRUGS (9)
  1. DACOGEN [Suspect]
     Indication: MYELODYSPLASTIC SYNDROME
     Dosage: 42 MG, 1 IN 1 DAY, INTRAVENOUS; 32 MG, 1 IN 1 DAY, INTRAVENOUS
     Route: 042
     Dates: start: 20070806, end: 20070810
  2. DACOGEN [Suspect]
     Indication: MYELODYSPLASTIC SYNDROME
     Dosage: 42 MG, 1 IN 1 DAY, INTRAVENOUS; 32 MG, 1 IN 1 DAY, INTRAVENOUS
     Route: 042
     Dates: start: 20071015, end: 20071019
  3. SYNTHROID [Concomitant]
  4. PRILOSEC [Concomitant]
  5. PROCTOL                     (ALL OTHER THERAPEUTIC PRODUCTS) [Concomitant]
  6. METOPROLOL TARTRATE [Concomitant]
  7. FENTANYL PATCH               (FENTANYL) [Concomitant]
  8. PHOSPHORUS              (PHOSPHORUS) [Concomitant]
  9. OXYCODONE HCL [Concomitant]

REACTIONS (8)
  - HAEMATOCRIT DECREASED [None]
  - HAEMATOMA [None]
  - HAEMOGLOBIN DECREASED [None]
  - NEUTROPHIL COUNT DECREASED [None]
  - OPEN WOUND [None]
  - PLATELET COUNT DECREASED [None]
  - WHITE BLOOD CELL COUNT DECREASED [None]
  - WOUND INFECTION STAPHYLOCOCCAL [None]
